FAERS Safety Report 9548118 (Version 1)
Quarter: 2013Q3

REPORT INFORMATION
  Report Type: Spontaneous
  Country: ZA (occurrence: ZA)
  Receive Date: 20130924
  Receipt Date: 20130924
  Transmission Date: 20140515
  Serious: Yes (Death, Other)
  Sender: FDA-Public Use
  Company Number: ZA-009507513-1309ZAF008642

PATIENT
  Sex: 0
  Weight: 250 kg

DRUGS (1)
  1. CANCIDAS 70MG [Suspect]
     Dosage: 70 MG, DAILY

REACTIONS (2)
  - Death [Fatal]
  - Surgery [Unknown]
